FAERS Safety Report 25129365 (Version 1)
Quarter: 2025Q1

REPORT INFORMATION
  Report Type: Spontaneous
  Country: IT (occurrence: IT)
  Receive Date: 20250327
  Receipt Date: 20250327
  Transmission Date: 20250409
  Serious: Yes (Other)
  Sender: SAMSUNG BIOEPIS
  Company Number: None

PATIENT
  Age: 69 Year
  Sex: Male
  Weight: 84 kg

DRUGS (1)
  1. ETANERCEPT [Suspect]
     Active Substance: ETANERCEPT
     Indication: Rheumatoid arthritis
     Dosage: 1 FL/ WEEK
     Route: 058
     Dates: start: 20190305, end: 20190305

REACTIONS (3)
  - Rheumatoid arthritis [Unknown]
  - Erectile dysfunction [Unknown]
  - Arthralgia [Unknown]
